FAERS Safety Report 9696346 (Version 2)
Quarter: 2013Q4

REPORT INFORMATION
  Report Type: Report from Study
  Country: VE (occurrence: VE)
  Receive Date: 20131119
  Receipt Date: 20131119
  Transmission Date: 20140711
  Serious: Yes (Other)
  Sender: FDA-Public Use
  Company Number: VE-ABBVIE-13P-178-1035782-00

PATIENT
  Age: 48 Year
  Sex: Male
  Weight: 71 kg

DRUGS (2)
  1. HUMIRA [Suspect]
     Indication: RHEUMATOID ARTHRITIS
     Route: 058
     Dates: start: 2008, end: 201111
  2. ISONIAZIDE [Concomitant]
     Indication: TUBERCULIN TEST POSITIVE
     Route: 048
     Dates: start: 201201, end: 201301

REACTIONS (1)
  - Tuberculin test positive [Recovered/Resolved with Sequelae]
